FAERS Safety Report 4328382-X (Version None)
Quarter: 2004Q1

REPORT INFORMATION
  Report Type: 
  Country: None (occurrence: None)
  Receive Date: 20040325
  Receipt Date: 20040128
  Transmission Date: 20041129
  Serious: No
  Sender: FDA-Public Use
  Company Number: USA-2004-0012666

PATIENT
  Sex: Male

DRUGS (1)
  1. SPECTRACEF [Suspect]
     Indication: SINUSITIS

REACTIONS (2)
  - DIARRHOEA [None]
  - OFF LABEL USE [None]
